FAERS Safety Report 6873432-X (Version None)
Quarter: 2010Q3

REPORT INFORMATION
  Report Type: 
  Country: None (occurrence: None)
  Receive Date: 20100723
  Receipt Date: 20090124
  Transmission Date: 20110219
  Serious: Yes (Other)
  Sender: FDA-Public Use
  Company Number: US-PFIZER INC-2009161055

PATIENT
  Age: 50 Year
  Sex: Female
  Weight: 86.168 kg

DRUGS (3)
  1. CHANTIX [Suspect]
     Indication: SMOKING CESSATION THERAPY
     Dosage: 1 MG, 2X/DAY
     Dates: start: 20081224, end: 20090123
  2. DRUG, UNSPECIFIED [Concomitant]
     Indication: THYROID DISORDER
     Dosage: UNK
  3. ALPRAZOLAM [Concomitant]
     Dosage: UNK

REACTIONS (7)
  - ACTIVITIES OF DAILY LIVING IMPAIRED [None]
  - FEELING ABNORMAL [None]
  - INTENTIONAL DRUG MISUSE [None]
  - LETHARGY [None]
  - MUSCLE SPASMS [None]
  - NIGHTMARE [None]
  - SUICIDAL IDEATION [None]
